FAERS Safety Report 6277470-X (Version None)
Quarter: 2009Q3

REPORT INFORMATION
  Report Type: 
  Country: None (occurrence: None)
  Receive Date: 20090722
  Receipt Date: 20090714
  Transmission Date: 20100115
  Serious: Yes (Hospitalization, Other)
  Sender: FDA-Public Use
  Company Number: JP-PFIZER INC-2009241857

PATIENT
  Age: 78 Year

DRUGS (6)
  1. ZITHROMAX [Suspect]
     Indication: PNEUMOCOCCAL INFECTION
     Dosage: UNK
     Route: 048
     Dates: start: 20090706, end: 20090706
  2. MUCODYNE [Suspect]
     Indication: PRODUCTIVE COUGH
     Dosage: UNK
     Route: 048
     Dates: start: 20090706, end: 20090706
  3. HUSCODE [Suspect]
     Indication: COUGH
     Dosage: UNK
     Route: 048
     Dates: start: 20090706, end: 20090706
  4. BLOPRESS [Concomitant]
     Dosage: UNK
     Route: 048
  5. CONIEL [Concomitant]
     Dosage: UNK
     Route: 048
  6. ALL OTHER THERAPEUTIC PRODUCTS [Concomitant]
     Route: 048

REACTIONS (3)
  - ASCITES [None]
  - PANCREATITIS ACUTE [None]
  - VOMITING [None]
